FAERS Safety Report 6491562-1 (Version None)
Quarter: 2009Q4

REPORT INFORMATION
  Report Type: 
  Country: None (occurrence: None)
  Receive Date: 20091125
  Receipt Date: 20090305
  Transmission Date: 20100525
  Serious: Yes (Hospitalization, Other)
  Sender: FDA-Public Use
  Company Number: 2009BH003805

PATIENT
  Age: 53 Year
  Sex: Female

DRUGS (1)
  1. DIANEAL [Suspect]
     Indication: RENAL FAILURE CHRONIC
     Dosage: ; UNK ; IP
     Route: 033
     Dates: end: 20090101

REACTIONS (7)
  - DECREASED APPETITE [None]
  - DIARRHOEA [None]
  - FAILURE TO THRIVE [None]
  - HYPOALBUMINAEMIA [None]
  - NAUSEA [None]
  - PERITONITIS BACTERIAL [None]
  - VOMITING [None]
